FAERS Safety Report 7238676-6 (Version None)
Quarter: 2011Q1

REPORT INFORMATION
  Report Type: 
  Country: None (occurrence: None)
  Receive Date: 20110121
  Receipt Date: 20110110
  Transmission Date: 20110831
  Serious: Yes (Death)
  Sender: FDA-Public Use
  Company Number: DE-ACTELION-A-US2011-43873

PATIENT

DRUGS (1)
  1. ILOPROST INHALATION SOLUTION 5UG US [Suspect]
     Indication: PRODUCT USED FOR UNKNOWN INDICATION
     Dosage: 5 ?G, QID
     Route: 055
     Dates: start: 20090129

REACTIONS (2)
  - DEATH [None]
  - ASTHENIA [None]
